FAERS Safety Report 17364822 (Version 1)
Quarter: 2020Q1

REPORT INFORMATION
  Report Type: Other
  Country: IN (occurrence: IN)
  Receive Date: 20200204
  Receipt Date: 20200204
  Transmission Date: 20200409
  Serious: Yes (Other)
  Sender: FDA-Public Use
  Company Number: IN-DEXPHARM-20200103

PATIENT
  Age: 57 Year
  Sex: Male

DRUGS (6)
  1. ATOVAQUONE. [Concomitant]
     Active Substance: ATOVAQUONE
  2. LEUCOVORIN. [Concomitant]
     Active Substance: LEUCOVORIN
  3. LEVETIRACETAM. [Suspect]
     Active Substance: LEVETIRACETAM
     Indication: TOXOPLASMOSIS
  4. ACYCLOVIR. [Concomitant]
     Active Substance: ACYCLOVIR
  5. SULPHADIAZINE [Concomitant]
     Active Substance: SULFADIAZINE
  6. PYRIMETHAMINE [Concomitant]
     Active Substance: PYRIMETHAMINE

REACTIONS (2)
  - Mental impairment [Unknown]
  - Drug reaction with eosinophilia and systemic symptoms [Recovered/Resolved]
